FAERS Safety Report 10864248 (Version 3)
Quarter: 2015Q2

REPORT INFORMATION
  Report Type: Spontaneous
  Country: GB (occurrence: GB)
  Receive Date: 20150224
  Receipt Date: 20150420
  Transmission Date: 20150821
  Serious: Yes (Death, Other)
  Sender: FDA-Public Use
  Company Number: GB-CELGENE-GBR-2015015496

PATIENT
  Age: 80 Year
  Sex: Female

DRUGS (2)
  1. WARFARIN [Concomitant]
     Active Substance: WARFARIN
     Indication: ATRIAL FIBRILLATION
     Route: 065
  2. REVLIMID [Suspect]
     Active Substance: LENALIDOMIDE
     Indication: PRODUCT USED FOR UNKNOWN INDICATION
     Dosage: 5 MILLIGRAM
     Route: 048

REACTIONS (5)
  - Acute myeloid leukaemia [Unknown]
  - No therapeutic response [Unknown]
  - Muscle haemorrhage [Recovered/Resolved]
  - Cytopenia [Recovered/Resolved]
  - Infection [Fatal]

NARRATIVE: CASE EVENT DATE: 2013
